FAERS Safety Report 5939434-2 (Version None)
Quarter: 2008Q4

REPORT INFORMATION
  Report Type: 
  Country: None (occurrence: None)
  Receive Date: 20081029
  Receipt Date: 20081015
  Transmission Date: 20090506
  Serious: Yes (Life-Threatening)
  Sender: FDA-Public Use
  Company Number: 2008S1018733

PATIENT
  Age: 84 Year
  Sex: Female

DRUGS (10)
  1. MELOXICAM [Suspect]
     Indication: ARTHRITIS
     Dosage: SEE IMAGEE
     Route: 048
     Dates: start: 20080708
  2. MELOXICAM [Suspect]
     Indication: ARTHRITIS
     Dosage: SEE IMAGEE
     Route: 048
     Dates: start: 20080708
  3. ASPIRIN [Concomitant]
  4. DOXAZOSIN (DOXAZOSIN) [Concomitant]
  5. FUROSEMIDE [Concomitant]
  6. LANSOPRAZOLE [Concomitant]
  7. LISINOPRIL [Concomitant]
  8. ACETAMINOPHEN [Concomitant]
  9. TIMOLOL MALEATE [Concomitant]
  10. XALATAN [Concomitant]

REACTIONS (2)
  - ARTHRALGIA [None]
  - TRANSIENT ISCHAEMIC ATTACK [None]
